FAERS Safety Report 6568903-X (Version None)
Quarter: 2010Q1

REPORT INFORMATION
  Report Type: 
  Country: None (occurrence: None)
  Receive Date: 20100201
  Receipt Date: 20100201
  Transmission Date: 20100710
  Serious: Yes (Disabling)
  Sender: FDA-Public Use
  Company Number: None

PATIENT
  Sex: Male
  Weight: 77.1115 kg

DRUGS (4)
  1. ZETIA [Suspect]
     Indication: BLOOD CHOLESTEROL
     Dosage: 1 TABLET DAILY MOUTH
     Dates: start: 20071101, end: 20080601
  2. ZETIA [Suspect]
     Indication: CARDIAC DISORDER
     Dosage: 1 TABLET DAILY MOUTH
     Dates: start: 20071101, end: 20080601
  3. PROVOCHOLINE [Concomitant]
  4. PRAVASTATIN SODIUM [Concomitant]

REACTIONS (1)
  - TESTICULAR SWELLING [None]
